FAERS Safety Report 14007666 (Version 1)
Quarter: 2017Q3

REPORT INFORMATION
  Report Type: Spontaneous
  Country: CN (occurrence: CN)
  Receive Date: 20170925
  Receipt Date: 20170925
  Transmission Date: 20171128
  Serious: Yes (Other)
  Sender: FDA-Public Use
  Company Number: CN-JNJFOC-20170920643

PATIENT
  Age: 57 Year
  Sex: Male
  Weight: 78 kg

DRUGS (1)
  1. INVEGA [Suspect]
     Active Substance: PALIPERIDONE
     Indication: SCHIZOPHRENIA
     Route: 048
     Dates: start: 20170412, end: 20170412

REACTIONS (1)
  - Muscle tone disorder [Recovering/Resolving]

NARRATIVE: CASE EVENT DATE: 20170412
